FAERS Safety Report 21218305 (Version 2)
Quarter: 2023Q2

REPORT INFORMATION
  Report Type: Other
  Country: GB (occurrence: None)
  Receive Date: 20220816
  Receipt Date: 20230511
  Transmission Date: 20230722
  Serious: Yes (Hospitalization)
  Sender: FDA-Public Use
  Company Number: GB-ROCHE-3159624

PATIENT
  Age: 62 Year
  Sex: Male

DRUGS (13)
  1. OCRELIZUMAB [Suspect]
     Active Substance: OCRELIZUMAB
     Indication: Relapsing-remitting multiple sclerosis
     Dosage: ON 15/FEB/2022, MOST RECENT DOSE OF STUDY DRUG PRIOR TO AE AND SAE WAS 600 MG. TOTAL VOLUME PRIOR AE
     Route: 042
     Dates: start: 20190730, end: 20190730
  2. OCRELIZUMAB [Suspect]
     Active Substance: OCRELIZUMAB
     Route: 042
     Dates: start: 20230502, end: 20230502
  3. OCRELIZUMAB [Suspect]
     Active Substance: OCRELIZUMAB
     Route: 042
     Dates: start: 20221025, end: 20221025
  4. OCRELIZUMAB [Suspect]
     Active Substance: OCRELIZUMAB
     Route: 042
     Dates: start: 20200127, end: 20200127
  5. OCRELIZUMAB [Suspect]
     Active Substance: OCRELIZUMAB
     Route: 042
     Dates: start: 20200811, end: 20200811
  6. OCRELIZUMAB [Suspect]
     Active Substance: OCRELIZUMAB
     Route: 042
     Dates: start: 20190813, end: 20190813
  7. OCRELIZUMAB [Suspect]
     Active Substance: OCRELIZUMAB
     Route: 042
     Dates: start: 20210209, end: 20210209
  8. OCRELIZUMAB [Suspect]
     Active Substance: OCRELIZUMAB
     Route: 042
     Dates: start: 20220215, end: 20220215
  9. OCRELIZUMAB [Suspect]
     Active Substance: OCRELIZUMAB
     Route: 042
     Dates: start: 20210810, end: 20210810
  10. IBUPROFEN [Concomitant]
     Active Substance: IBUPROFEN
     Dosage: ONGOING: YES
  11. AMITRIPTYLINE [Concomitant]
     Active Substance: AMITRIPTYLINE
     Dosage: ONGOING : YES
     Route: 048
  12. BACLOFEN [Concomitant]
     Active Substance: BACLOFEN
     Dosage: ONGOING : YES
     Route: 048
  13. CODEINE PHOSPHATE [Concomitant]
     Active Substance: CODEINE PHOSPHATE
     Dosage: ONGOING : YES

REACTIONS (1)
  - Post procedural swelling [Recovered/Resolved with Sequelae]

NARRATIVE: CASE EVENT DATE: 20220615
